FAERS Safety Report 7388705-4 (Version None)
Quarter: 2011Q2

REPORT INFORMATION
  Report Type: 
  Country: None (occurrence: None)
  Receive Date: 20110401
  Receipt Date: 20110325
  Transmission Date: 20111010
  Serious: Yes (Other)
  Sender: FDA-Public Use
  Company Number: US-BRISTOL-MYERS SQUIBB COMPANY-15628290

PATIENT
  Age: 28 Year
  Sex: Female

DRUGS (10)
  1. CYTARABINE [Suspect]
     Indication: BURKITT'S LYMPHOMA
     Dosage: ON DAYS 3,5,21,45 ALSO IN IV AS 4 DOSES OF 3.2G/M SUP(2) ON 12HRS
     Route: 037
  2. CYCLOPHOSPHAMIDE [Suspect]
     Indication: BURKITT'S LYMPHOMA
     Dosage: DOSAGE ON 200MG/M SUP(2) ON DAYS 2-5
     Route: 042
  3. PREDNISONE [Suspect]
     Indication: BURKITT'S LYMPHOMA
     Dosage: GIVEN ON DAYS1-5
     Route: 048
  4. ETOPOSIDE [Suspect]
     Indication: BURKITT'S LYMPHOMA
  5. IFOSFAMIDE [Suspect]
     Indication: BURKITT'S LYMPHOMA
     Route: 042
  6. MESNA [Suspect]
     Indication: BURKITT'S LYMPHOMA
     Dosage: WITH A 12HOUR MESNA TAIL
  7. VINCRISTINE [Suspect]
     Indication: BURKITT'S LYMPHOMA
  8. DOXORUBICIN [Suspect]
     Indication: BURKITT'S LYMPHOMA
  9. FILGRASTIM [Suspect]
  10. RITUXIMAB [Suspect]
     Indication: BURKITT'S LYMPHOMA
     Dosage: ON DAYS 13,18,39,42,59,62 AND 89

REACTIONS (11)
  - BLOOD LACTATE DEHYDROGENASE INCREASED [None]
  - PREGNANCY [None]
  - VOMITING [None]
  - POSTPARTUM DEPRESSION [None]
  - NAUSEA [None]
  - DRUG EXPOSURE DURING PREGNANCY [None]
  - FEBRILE NEUTROPENIA [None]
  - UTERINE CONTRACTIONS DURING PREGNANCY [None]
  - AMNIOTIC FLUID VOLUME DECREASED [None]
  - VAGINAL HAEMORRHAGE [None]
  - EROSIVE OESOPHAGITIS [None]
